FAERS Safety Report 24972325 (Version 1)
Quarter: 2025Q1

REPORT INFORMATION
  Report Type: Report from Study
  Country: US (occurrence: US)
  Receive Date: 20250214
  Receipt Date: 20250214
  Transmission Date: 20250408
  Serious: Yes (Other)
  Sender: ABBVIE
  Company Number: US-ABBVIE-5996973

PATIENT
  Age: 34 Year
  Sex: Female

DRUGS (2)
  1. SKYRIZI [Suspect]
     Active Substance: RISANKIZUMAB-RZAA
     Indication: Psoriasis
     Route: 058
     Dates: start: 20240314
  2. SKYRIZI [Suspect]
     Active Substance: RISANKIZUMAB-RZAA
     Route: 058

REACTIONS (10)
  - Abortion spontaneous [Unknown]
  - Scar [Recovered/Resolved]
  - Skin discolouration [Recovered/Resolved]
  - Skin discolouration [Unknown]
  - Scar [Unknown]
  - Pigmentation disorder [Unknown]
  - Joint swelling [Recovering/Resolving]
  - Maternal exposure during pregnancy [Unknown]
  - Influenza [Recovering/Resolving]
  - Malaise [Unknown]

NARRATIVE: CASE EVENT DATE: 20240415
